FAERS Safety Report 15294321 (Version 1)
Quarter: 2018Q3

REPORT INFORMATION
  Report Type: Spontaneous
  Country: US (occurrence: US)
  Receive Date: 20180807
  Receipt Date: 20180807
  Transmission Date: 20181010
  Serious: Yes (Other)
  Sender: FDA-Public Use
  Company Number: None

PATIENT
  Age: 65 Year
  Sex: Female

DRUGS (2)
  1. OCREVUS [Suspect]
     Active Substance: OCRELIZUMAB
     Indication: MYELOPATHY
     Dosage: 600 MG/MG EVERY 6 MONTHS INTRAVENOUS?          ?
     Route: 042
     Dates: start: 20180313
  2. AMPYRA [Concomitant]
     Active Substance: DALFAMPRIDINE
     Dates: start: 20180207

REACTIONS (2)
  - Loss of personal independence in daily activities [None]
  - Fatigue [None]
